FAERS Safety Report 21278097 (Version 1)
Quarter: 2022Q3

REPORT INFORMATION
  Report Type: Spontaneous
  Country: US (occurrence: US)
  Receive Date: 20220831
  Receipt Date: 20220831
  Transmission Date: 20221026
  Serious: No
  Sender: FDA-Public Use
  Company Number: US-ABBVIE-22K-163-4243006-00

PATIENT
  Age: 27 Year
  Sex: Female

DRUGS (12)
  1. HUMIRA [Suspect]
     Active Substance: ADALIMUMAB
     Indication: Hidradenitis
     Route: 058
     Dates: start: 20210806, end: 20220117
  2. NALTREXONE [Concomitant]
     Active Substance: NALTREXONE
     Indication: Pain
  3. LYRICA [Concomitant]
     Active Substance: PREGABALIN
     Indication: Pain
  4. LYRICA [Concomitant]
     Active Substance: PREGABALIN
     Indication: Fibromyalgia
  5. CYMBALTA [Concomitant]
     Active Substance: DULOXETINE HYDROCHLORIDE
     Indication: Pain
  6. METOPROLOL [Concomitant]
     Active Substance: METOPROLOL
     Indication: Arrhythmia
  7. CHLORZOXAZONE [Concomitant]
     Active Substance: CHLORZOXAZONE
     Indication: Muscle relaxant therapy
  8. CHLORZOXAZONE [Concomitant]
     Active Substance: CHLORZOXAZONE
     Indication: Pain
  9. NUVARING [Concomitant]
     Active Substance: ETHINYL ESTRADIOL\ETONOGESTREL
     Indication: Contraception
  10. MODERNA COVID-19 VACCINE [Concomitant]
     Active Substance: ELASOMERAN
     Indication: COVID-19 immunisation
     Route: 030
     Dates: start: 20210317, end: 20210317
  11. MODERNA COVID-19 VACCINE [Concomitant]
     Active Substance: ELASOMERAN
     Route: 030
     Dates: start: 20210414, end: 20210414
  12. MODERNA COVID-19 VACCINE [Concomitant]
     Active Substance: ELASOMERAN
     Route: 030
     Dates: start: 20210815, end: 20210815

REACTIONS (5)
  - SARS-CoV-2 test positive [Recovered/Resolved]
  - SARS-CoV-2 test positive [Not Recovered/Not Resolved]
  - Illness [Recovered/Resolved]
  - Paranasal sinus discomfort [Recovering/Resolving]
  - COVID-19 [Recovering/Resolving]

NARRATIVE: CASE EVENT DATE: 20211201
